FAERS Safety Report 24385852 (Version 1)
Quarter: 2024Q4

REPORT INFORMATION
  Report Type: Spontaneous
  Country: US (occurrence: US)
  Receive Date: 20241001
  Receipt Date: 20241001
  Transmission Date: 20250115
  Serious: Yes (Other)
  Sender: SANDOZ
  Company Number: US-002147023-NVSC2022US229187

PATIENT
  Age: 73 Year
  Sex: Female

DRUGS (2)
  1. RECLAST [Suspect]
     Active Substance: ZOLEDRONIC ACID
     Dosage: 5 MG
     Route: 042
     Dates: start: 20231003, end: 20231003
  2. RECLAST [Suspect]
     Active Substance: ZOLEDRONIC ACID
     Indication: Osteoporosis
     Dosage: UNK
     Route: 042
     Dates: start: 20221008

REACTIONS (12)
  - Pulmonary embolism [Recovered/Resolved]
  - Neoplasm malignant [Unknown]
  - Thrombosis [Unknown]
  - Bone pain [Not Recovered/Not Resolved]
  - Pyrexia [Not Recovered/Not Resolved]
  - Arthralgia [Not Recovered/Not Resolved]
  - Myalgia [Not Recovered/Not Resolved]
  - Decreased appetite [Unknown]
  - Malaise [Unknown]
  - Chills [Unknown]
  - Hypotension [Unknown]
  - Back pain [Unknown]

NARRATIVE: CASE EVENT DATE: 20221008
